FAERS Safety Report 14272266 (Version 2)
Quarter: 2017Q4

REPORT INFORMATION
  Report Type: Spontaneous
  Country: IT (occurrence: IT)
  Receive Date: 20171211
  Receipt Date: 20171231
  Transmission Date: 20180321
  Serious: Yes (Other)
  Sender: FDA-Public Use
  Company Number: IT-TEVA-2017-IT-832039

PATIENT
  Age: 64 Year
  Sex: Male

DRUGS (7)
  1. DOXORUBICIN [Concomitant]
     Active Substance: DOXORUBICIN
  2. METHOTREXATE. [Suspect]
     Active Substance: METHOTREXATE
     Indication: WALDENSTROM^S MACROGLOBULINAEMIA
     Dosage: HIGH-DOSE
  3. RITUXIMAB. [Concomitant]
     Active Substance: RITUXIMAB
  4. DEXAMETHASONE. [Concomitant]
     Active Substance: DEXAMETHASONE
  5. VINCRISTINE [Concomitant]
     Active Substance: VINCRISTINE
  6. CYTARABINE. [Concomitant]
     Active Substance: CYTARABINE
  7. CYCLOPHOSPHAMIDE. [Concomitant]
     Active Substance: CYCLOPHOSPHAMIDE

REACTIONS (2)
  - Acute kidney injury [Unknown]
  - Condition aggravated [Unknown]
